FAERS Safety Report 18444643 (Version 1)
Quarter: 2020Q4

REPORT INFORMATION
  Report Type: Spontaneous
  Country: BG (occurrence: BG)
  Receive Date: 20201030
  Receipt Date: 20201030
  Transmission Date: 20210114
  Serious: Yes (Death, Life-Threatening, Hospitalization)
  Sender: FDA-Public Use
  Company Number: BG-ACCORD-206468

PATIENT
  Age: 61 Year
  Sex: Female

DRUGS (1)
  1. METHOTREXATE. [Suspect]
     Active Substance: METHOTREXATE
     Indication: PSORIASIS
     Dosage: 15 MG/ONCE WEEKLY PRESCRIBED?15 MG/DAILY FOR 6 DAYS?TOTAL INGESTED DOSE - 90 MG
     Route: 048

REACTIONS (5)
  - Oral mucosa erosion [Fatal]
  - Pancytopenia [Fatal]
  - Overdose [Fatal]
  - Skin erosion [Fatal]
  - Multiple organ dysfunction syndrome [Fatal]
